FAERS Safety Report 24703781 (Version 1)
Quarter: 2024Q4

REPORT INFORMATION
  Report Type: Report from Study
  Country: CA (occurrence: CA)
  Receive Date: 20241206
  Receipt Date: 20241206
  Transmission Date: 20250115
  Serious: Yes (Hospitalization, Other)
  Sender: Alvotech
  Company Number: CA-JAMP PHARMA CORPORATION-2024-JAM-CA-00634

PATIENT
  Age: 37 Year
  Sex: Female

DRUGS (4)
  1. SIMLANDI [Suspect]
     Active Substance: ADALIMUMAB-RYVK
     Indication: Crohn^s disease
     Dosage: 40 MILLIGRAM, EVERY WEEK
     Route: 065
     Dates: start: 20240315
  2. CORTISONE [Concomitant]
     Active Substance: CORTISONE
     Indication: Crohn^s disease
     Dosage: UNK
  3. PREDNISONE [Concomitant]
     Active Substance: PREDNISONE
     Indication: Crohn^s disease
     Dosage: UNK
     Route: 065
  4. SIMLANDI [Suspect]
     Active Substance: ADALIMUMAB-RYVK
     Indication: Crohn^s disease
     Dosage: UNK
     Route: 065
     Dates: start: 20240105

REACTIONS (8)
  - Hyperthyroidism [Unknown]
  - Migraine [Unknown]
  - Pre-eclampsia [Unknown]
  - Hyperparathyroidism [Unknown]
  - Blood calcium increased [Unknown]
  - Hypertension [Unknown]
  - Anaemia [Unknown]
  - Exposure during pregnancy [Unknown]
